FAERS Safety Report 21549054 (Version 1)
Quarter: 2022Q4

REPORT INFORMATION
  Report Type: Spontaneous
  Country: US (occurrence: None)
  Receive Date: 20221102
  Receipt Date: 20221102
  Transmission Date: 20230113
  Serious: Yes (Disabling)
  Sender: FDA-Public Use
  Company Number: None

PATIENT
  Age: 32 Year
  Sex: Female
  Weight: 56.25 kg

DRUGS (9)
  1. HYDROCODONE BITARTRATE AND ACETAMINOPHEN [Suspect]
     Active Substance: ACETAMINOPHEN\HYDROCODONE BITARTRATE
     Indication: Neuralgia
     Dosage: OTHER QUANTITY : 1 TABLET(S);?FREQUENCY : TWICE A DAY;?
     Route: 048
     Dates: start: 20221021, end: 20221101
  2. Tramadol 200 mg ER [Concomitant]
  3. Wellbutrin 300 mg ER [Concomitant]
  4. Clonozopam 1mg [Concomitant]
  5. Lorazepam .5 mg [Concomitant]
  6. Hydrocodone-Acetemetophine (10-325mg) since accident Jan 2022 [Concomitant]
  7. VITAMINS [Concomitant]
     Active Substance: VITAMINS
  8. Vitamin C [Concomitant]
  9. B12 (for peripheral nerve regeneration) [Concomitant]

REACTIONS (5)
  - Drug ineffective [None]
  - Dizziness [None]
  - Product substitution issue [None]
  - Nausea [None]
  - Pain [None]

NARRATIVE: CASE EVENT DATE: 20221021
